FAERS Safety Report 9681803 (Version 2)
Quarter: 2013Q4

REPORT INFORMATION
  Report Type: Report from Study
  Country: CN (occurrence: CN)
  Receive Date: 20131111
  Receipt Date: 20131111
  Transmission Date: 20140711
  Serious: Yes (Other)
  Sender: FDA-Public Use
  Company Number: CN-ROCHE-1260062

PATIENT
  Sex: Female

DRUGS (4)
  1. PEGASYS [Suspect]
     Indication: HEPATITIS C
     Route: 058
     Dates: start: 20121220, end: 20130523
  2. PEGASYS [Suspect]
     Dosage: REDUCED DOSE
     Route: 058
     Dates: start: 20130530, end: 201307
  3. PEGASYS [Suspect]
     Route: 058
     Dates: start: 201307
  4. PEGASYS [Suspect]
     Route: 058
     Dates: start: 20131107

REACTIONS (3)
  - White blood cell count decreased [Unknown]
  - Insomnia [Recovering/Resolving]
  - Asthenia [Recovering/Resolving]
